FAERS Safety Report 8239427-9 (Version None)
Quarter: 2012Q1

REPORT INFORMATION
  Report Type: 
  Country: None (occurrence: None)
  Receive Date: 20120326
  Receipt Date: 20120319
  Transmission Date: 20120608
  Serious: Yes (Other)
  Sender: FDA-Public Use
  Company Number: 2012SP007680

PATIENT
  Age: 34 Year
  Sex: Female

DRUGS (1)
  1. NUVARING [Suspect]
     Indication: CONTRACEPTION
     Dates: start: 20110801

REACTIONS (5)
  - OVARIAN CYST [None]
  - ABORTION SPONTANEOUS [None]
  - MATERNAL DRUGS AFFECTING FOETUS [None]
  - PREGNANCY WITH CONTRACEPTIVE DEVICE [None]
  - BLIGHTED OVUM [None]
